FAERS Safety Report 15968609 (Version 3)
Quarter: 2019Q1

REPORT INFORMATION
  Report Type: Spontaneous
  Country: JP (occurrence: JP)
  Receive Date: 20190215
  Receipt Date: 20190320
  Transmission Date: 20190418
  Serious: Yes (Death)
  Sender: FDA-Public Use
  Company Number: JP-PFIZER INC-2019067062

PATIENT
  Age: 66 Year
  Sex: Male

DRUGS (7)
  1. CLARITHROMYCIN. [Suspect]
     Active Substance: CLARITHROMYCIN
     Indication: MYCOBACTERIUM AVIUM COMPLEX INFECTION
     Dosage: 800 MG, DAILY
  2. SITAFLOXACIN [Suspect]
     Active Substance: SITAFLOXACIN
     Indication: PERITONITIS
     Dosage: 200 MG, DAILY
  3. STREPTOMYCIN [Suspect]
     Active Substance: STREPTOMYCIN\STREPTOMYCIN SULFATE
     Indication: MYCOBACTERIAL PERITONITIS
     Dosage: 750 MG, 2X/WEEK
  4. CLARITHROMYCIN. [Suspect]
     Active Substance: CLARITHROMYCIN
     Indication: PERITONITIS
  5. RIFABUTIN. [Suspect]
     Active Substance: RIFABUTIN
     Indication: MYCOBACTERIUM AVIUM COMPLEX INFECTION
  6. RIFABUTIN. [Suspect]
     Active Substance: RIFABUTIN
     Indication: PERITONITIS
     Dosage: 300 MG, DAILY
  7. SITAFLOXACIN [Suspect]
     Active Substance: SITAFLOXACIN
     Dosage: 100 UNK, UNK

REACTIONS (1)
  - Drug ineffective for unapproved indication [Fatal]
